FAERS Safety Report 8391250-0 (Version None)
Quarter: 2012Q2

REPORT INFORMATION
  Report Type: 
  Country: None (occurrence: None)
  Receive Date: 20120529
  Receipt Date: 20120517
  Transmission Date: 20120825
  Serious: Yes (Hospitalization)
  Sender: FDA-Public Use
  Company Number: US-ASTRAZENECA-2012SE31759

PATIENT
  Age: 55 Year
  Sex: Female

DRUGS (2)
  1. SYMBICORT [Suspect]
     Dosage: 160/4.5 MCG ONE PUFF DAILY
     Route: 055
  2. PREDNISONE [Concomitant]
     Route: 048
     Dates: start: 20120516

REACTIONS (5)
  - EYELID FUNCTION DISORDER [None]
  - LOWER RESPIRATORY TRACT INFLAMMATION [None]
  - MIDDLE EAR EFFUSION [None]
  - CEREBROVASCULAR ACCIDENT [None]
  - FACIAL PARESIS [None]
